FAERS Safety Report 24771164 (Version 1)
Quarter: 2024Q4

REPORT INFORMATION
  Report Type: Report from Study
  Country: DE (occurrence: DE)
  Receive Date: 20241224
  Receipt Date: 20241224
  Transmission Date: 20250115
  Serious: Yes (Hospitalization)
  Sender: ABBVIE
  Company Number: DE-ABBVIE-6060883

PATIENT
  Age: 60 Year
  Sex: Male

DRUGS (2)
  1. FOSCARBIDOPA\FOSLEVODOPA [Suspect]
     Active Substance: FOSCARBIDOPA\FOSLEVODOPA
     Indication: Parkinson^s disease
     Dosage: DOSAGE: CRN: 0.27 ML/H, CR: 0.38 ML/H, CRH: 0.40 ML/H, ED: 0.20 ML?LAST ADMIN DATE: 2024
     Route: 058
     Dates: start: 20240930
  2. FOSCARBIDOPA\FOSLEVODOPA [Suspect]
     Active Substance: FOSCARBIDOPA\FOSLEVODOPA
     Dosage: ADJUSTED DOSAGE: CRN: 0.36 ML/H, CR: 0.46 ML/H, CRH: 0.49 ML/H, ED 0.25 ML?FIRST ADMIN DATE: 2024
     Route: 058

REACTIONS (2)
  - Musculoskeletal stiffness [Recovering/Resolving]
  - Asthenia [Recovering/Resolving]

NARRATIVE: CASE EVENT DATE: 20240101
